FAERS Safety Report 9642853 (Version 1)
Quarter: 2013Q4

REPORT INFORMATION
  Report Type: Spontaneous
  Country: JP (occurrence: JP)
  Receive Date: 20131024
  Receipt Date: 20131024
  Transmission Date: 20140711
  Serious: Yes (Other)
  Sender: FDA-Public Use
  Company Number: JP-ASTELLAS-2013JP011409

PATIENT
  Sex: Male

DRUGS (8)
  1. PROGRAF [Suspect]
     Indication: PROPHYLAXIS AGAINST GRAFT VERSUS HOST DISEASE
     Dosage: 0.03 MG/KG, UNKNOWN/D
     Route: 065
  2. PROGRAF [Suspect]
     Dosage: UNK
     Route: 065
  3. MYCOPHENOLATE MOFETIL [Concomitant]
     Indication: PROPHYLAXIS AGAINST GRAFT VERSUS HOST DISEASE
     Dosage: UNK MG, TID
     Route: 048
  4. MYCOPHENOLATE MOFETIL [Concomitant]
     Dosage: UNK
     Route: 048
  5. CEFOTAXIME [Concomitant]
     Indication: INFECTION PROPHYLAXIS
     Route: 065
  6. FLUCONAZOLE [Concomitant]
     Indication: INFECTION PROPHYLAXIS
     Route: 065
  7. SULFAMETHOXAZOLE W/TRIMETHOPRIM [Concomitant]
     Indication: INFECTION PROPHYLAXIS
     Route: 065
  8. ACYCLOVIR                          /00587301/ [Concomitant]
     Indication: INFECTION PROPHYLAXIS
     Route: 065

REACTIONS (2)
  - Drug ineffective [Unknown]
  - Acute graft versus host disease [Recovered/Resolved]
